FAERS Safety Report 8830983 (Version 1)
Quarter: 2012Q4

REPORT INFORMATION
  Report Type: 
  Country: NL (occurrence: NL)
  Receive Date: 20121009
  Receipt Date: 20121009
  Transmission Date: 20130627
  Serious: Yes (Hospitalization)
  Sender: FDA-Public Use
  Company Number: NL-PFIZER INC-2012246156

PATIENT
  Sex: Female
  Weight: 47 kg

DRUGS (1)
  1. GENOTROPIN [Suspect]
     Dosage: 0.3 mg, 7/wk
     Route: 058
     Dates: start: 20061212

REACTIONS (1)
  - Accident [Unknown]
